FAERS Safety Report 14008797 (Version 2)
Quarter: 2017Q4

REPORT INFORMATION
  Report Type: Spontaneous
  Country: None (occurrence: ZM)
  Receive Date: 20170925
  Receipt Date: 20171109
  Transmission Date: 20180321
  Serious: Yes (Other)
  Sender: FDA-Public Use
  Company Number: ZM-POPULATION COUNCIL, INC.-2027572

PATIENT
  Age: 26 Year
  Sex: Female

DRUGS (1)
  1. JADELLE [Suspect]
     Active Substance: LEVONORGESTREL
     Indication: CONTRACEPTION
     Route: 059
     Dates: start: 20170317, end: 20170719

REACTIONS (2)
  - Genital haemorrhage [None]
  - Device difficult to use [None]

NARRATIVE: CASE EVENT DATE: 20170719
